FAERS Safety Report 18164871 (Version 1)
Quarter: 2020Q3

REPORT INFORMATION
  Report Type: Spontaneous
  Country: GB (occurrence: GB)
  Receive Date: 20200818
  Receipt Date: 20200818
  Transmission Date: 20201103
  Serious: Yes (Other)
  Sender: FDA-Public Use
  Company Number: GB-MYLANLABS-2020M1071023

PATIENT
  Age: 68 Year
  Sex: Female
  Weight: 96 kg

DRUGS (2)
  1. CLARITHROMYCIN. [Suspect]
     Active Substance: CLARITHROMYCIN
     Indication: EYE INFECTION
     Dosage: 250 MILLIGRAM
     Route: 048
     Dates: start: 20200718
  2. SERTRALINE [Concomitant]
     Active Substance: SERTRALINE HYDROCHLORIDE
     Indication: OBSESSIVE-COMPULSIVE DISORDER
     Dosage: UNK

REACTIONS (3)
  - Depression [Recovering/Resolving]
  - Lethargy [Unknown]
  - Nightmare [Unknown]

NARRATIVE: CASE EVENT DATE: 20200719
